FAERS Safety Report 12896830 (Version 4)
Quarter: 2016Q4

REPORT INFORMATION
  Report Type: Spontaneous
  Country: US (occurrence: US)
  Receive Date: 20161031
  Receipt Date: 20161202
  Transmission Date: 20170207
  Serious: Yes (Hospitalization, Other)
  Sender: FDA-Public Use
  Company Number: US-PFIZER INC-2016498880

PATIENT
  Age: 62 Year
  Sex: Male
  Weight: 98 kg

DRUGS (18)
  1. AMIODARONE HCL [Suspect]
     Active Substance: AMIODARONE HYDROCHLORIDE
     Indication: CARDIAC DISORDER
  2. SPIRONOLACTONE. [Suspect]
     Active Substance: SPIRONOLACTONE
     Indication: HYPERTENSION
     Dosage: 25 MG, DAILY
  3. OXYCODONE [Suspect]
     Active Substance: OXYCODONE
     Dosage: 5 MG, UNK
  4. TORSEMIDE. [Suspect]
     Active Substance: TORSEMIDE
     Indication: HYPERTENSION
     Dosage: 100 MG, 2X/DAY
  5. METOLAZONE. [Suspect]
     Active Substance: METOLAZONE
     Indication: HYPERTENSION
     Dosage: 5 MG, AS NEEDED (DAILY, PRN)
  6. APIXABAN [Suspect]
     Active Substance: APIXABAN
     Indication: CARDIAC DISORDER
     Dosage: UNK
  7. TORSEMIDE. [Suspect]
     Active Substance: TORSEMIDE
     Indication: CARDIAC DISORDER
  8. METOLAZONE. [Suspect]
     Active Substance: METOLAZONE
     Indication: CARDIAC DISORDER
  9. DABIGATRAN [Suspect]
     Active Substance: DABIGATRAN
     Indication: HYPERTENSION
     Dosage: UNK
  10. AMIODARONE HCL [Suspect]
     Active Substance: AMIODARONE HYDROCHLORIDE
     Indication: HYPERTENSION
     Dosage: 200 MG, DAILY
  11. SPIRONOLACTONE. [Suspect]
     Active Substance: SPIRONOLACTONE
     Indication: CARDIAC DISORDER
  12. GLIPIZIDE. [Suspect]
     Active Substance: GLIPIZIDE
     Indication: HYPERTENSION
     Dosage: UNK
  13. METOPROLOL SUCCINATE. [Suspect]
     Active Substance: METOPROLOL SUCCINATE
     Indication: CARDIAC DISORDER
  14. ASPIRIN. [Suspect]
     Active Substance: ASPIRIN
     Indication: CARDIAC DISORDER
  15. METOPROLOL SUCCINATE. [Suspect]
     Active Substance: METOPROLOL SUCCINATE
     Indication: HYPERTENSION
     Dosage: 37.5 MG, 2X/DAY (Q12H)
  16. DABIGATRAN [Suspect]
     Active Substance: DABIGATRAN
     Indication: CARDIAC DISORDER
  17. ASPIRIN. [Suspect]
     Active Substance: ASPIRIN
     Indication: HYPERTENSION
     Dosage: 81 MG, DAILY
  18. GLIPIZIDE. [Suspect]
     Active Substance: GLIPIZIDE
     Indication: CARDIAC DISORDER

REACTIONS (4)
  - Cardiac failure [Unknown]
  - Hypotension [Unknown]
  - Cardiac amyloidosis [Unknown]
  - Dizziness [Unknown]
